FAERS Safety Report 4354032-2 (Version None)
Quarter: 2004Q2

REPORT INFORMATION
  Report Type: 
  Country: None (occurrence: None)
  Receive Date: 20040430
  Receipt Date: 20040419
  Transmission Date: 20050107
  Serious: No
  Sender: FDA-Public Use
  Company Number: 2004-115243-NL

PATIENT
  Age: 3 Year
  Sex: Female

DRUGS (5)
  1. DEXAMETHASONE [Suspect]
     Indication: ACUTE LYMPHOCYTIC LEUKAEMIA
     Dosage: 3.5 MG
     Route: 048
     Dates: start: 20040303, end: 20040406
  2. PEGASPARGASE [Suspect]
     Indication: ACUTE LYMPHOCYTIC LEUKAEMIA
     Dosage: 600 IU
     Dates: start: 20040308, end: 20040322
  3. VINCRISTINE [Concomitant]
  4. COTRIM [Concomitant]
  5. HEPARIN-FRACTION, SODIUM SALT [Concomitant]

REACTIONS (2)
  - HEPATOMEGALY [None]
  - HYPERTRIGLYCERIDAEMIA [None]
